FAERS Safety Report 8473441-3 (Version None)
Quarter: 2012Q2

REPORT INFORMATION
  Report Type: 
  Country: None (occurrence: None)
  Receive Date: 20120628
  Receipt Date: 20120625
  Transmission Date: 20120825
  Serious: Yes (Death)
  Sender: FDA-Public Use
  Company Number: US-ELI_LILLY_AND_COMPANY-US201206001595

PATIENT
  Sex: Male
  Weight: 64.399 kg

DRUGS (9)
  1. FRAGMIN [Concomitant]
     Dosage: UNK, UNKNOWN
     Route: 065
  2. OMEPRAZOLE [Concomitant]
     Dosage: UNK, UNKNOWN
     Route: 065
  3. GEMZAR [Suspect]
     Indication: PANCREATIC CARCINOMA
     Dosage: 2000 MG, WEEKLY (1/W)
     Route: 042
     Dates: start: 20110613, end: 20110816
  4. DILAUDID [Concomitant]
     Dosage: UNK, UNKNOWN
     Route: 065
  5. DYAZIDE [Concomitant]
     Dosage: UNK, UNKNOWN
     Route: 065
  6. SANDOSTATIN [Concomitant]
     Dosage: UNK, UNKNOWN
     Route: 065
  7. TARCEVA [Concomitant]
     Dosage: UNK, UNKNOWN
     Route: 065
  8. LOMOTIL [Concomitant]
     Dosage: UNK, UNKNOWN
     Route: 065
  9. SANTYL [Concomitant]
     Dosage: UNK, UNKNOWN
     Route: 065

REACTIONS (1)
  - PANCREATIC CARCINOMA [None]
